FAERS Safety Report 18244126 (Version 3)
Quarter: 2020Q4

REPORT INFORMATION
  Report Type: Report from Study
  Country: NO (occurrence: NO)
  Receive Date: 20200908
  Receipt Date: 20201006
  Transmission Date: 20210113
  Serious: Yes (Other)
  Sender: FDA-Public Use
  Company Number: NO-BAYER-2020-181403

PATIENT
  Age: 39 Year
  Sex: Female

DRUGS (1)
  1. MIRENA [Suspect]
     Active Substance: LEVONORGESTREL
     Indication: CONTRACEPTION
     Dosage: 20 ?G PER DAY CONTINOUSLY
     Route: 015
     Dates: start: 20200819, end: 20200819

REACTIONS (4)
  - Procedural pain [Recovered/Resolved]
  - Uterine spasm [None]
  - Complication of device insertion [None]
  - Device breakage [None]

NARRATIVE: CASE EVENT DATE: 20200819
